APPROVED DRUG PRODUCT: TERAZOSIN HYDROCHLORIDE
Active Ingredient: TERAZOSIN HYDROCHLORIDE
Strength: EQ 5MG BASE
Dosage Form/Route: CAPSULE;ORAL
Application: A076021 | Product #003
Applicant: RANBAXY LABORATORIES LTD
Approved: Aug 22, 2002 | RLD: No | RS: No | Type: DISCN